FAERS Safety Report 4457422-2 (Version None)
Quarter: 2004Q3

REPORT INFORMATION
  Report Type: 
  Country: None (occurrence: None)
  Receive Date: 20040921
  Receipt Date: 20040910
  Transmission Date: 20050211
  Serious: Yes (Hospitalization)
  Sender: FDA-Public Use
  Company Number: D0044666A

PATIENT
  Age: 48 Year
  Sex: Female
  Weight: 44.9061 kg

DRUGS (2)
  1. LITHIUM CARBONATE [Suspect]
     Dosage: 450 MG/ ORAL
     Route: 048
  2. SERTRALINE HCL [Suspect]
     Dosage: 100 MG/ ORAL
     Route: 048

REACTIONS (5)
  - INTENTIONAL OVERDOSE [None]
  - SUICIDAL IDEATION [None]
  - SUICIDE ATTEMPT [None]
  - TREMOR [None]
  - VOMITING [None]
